FAERS Safety Report 20520123 (Version 3)
Quarter: 2022Q3

REPORT INFORMATION
  Report Type: Report from Study
  Country: CN (occurrence: None)
  Receive Date: 20220225
  Receipt Date: 20220909
  Transmission Date: 20221026
  Serious: Yes (Hospitalization)
  Sender: FDA-Public Use
  Company Number: 2021A536208

PATIENT
  Age: 17799 Day
  Sex: Female

DRUGS (14)
  1. DURVALUMAB [Suspect]
     Active Substance: DURVALUMAB
     Indication: Small cell lung cancer limited stage
     Route: 042
     Dates: start: 20210325, end: 20210325
  2. DURVALUMAB [Suspect]
     Active Substance: DURVALUMAB
     Indication: Small cell lung cancer limited stage
     Route: 042
     Dates: start: 20210423, end: 20210423
  3. DURVALUMAB [Suspect]
     Active Substance: DURVALUMAB
     Indication: Small cell lung cancer limited stage
     Route: 042
     Dates: start: 20210524, end: 20210524
  4. TREMELIMUMAB [Suspect]
     Active Substance: TREMELIMUMAB
     Indication: Small cell lung cancer limited stage
     Route: 042
     Dates: start: 20210325, end: 20210325
  5. TREMELIMUMAB [Suspect]
     Active Substance: TREMELIMUMAB
     Indication: Small cell lung cancer limited stage
     Route: 042
     Dates: start: 20210423, end: 20210423
  6. TREMELIMUMAB [Suspect]
     Active Substance: TREMELIMUMAB
     Indication: Small cell lung cancer limited stage
     Route: 042
     Dates: start: 20210524, end: 20210524
  7. HERBALS [Suspect]
     Active Substance: HERBALS
     Indication: Abdominal discomfort
     Dosage: 1.00 DOSE TWO TIMES A DAY
     Route: 048
     Dates: start: 20210528, end: 20210615
  8. TELMISARTAN [Concomitant]
     Active Substance: TELMISARTAN
     Indication: Hypertension
     Route: 048
     Dates: start: 2014
  9. CEFACLOR CAPSULES [Concomitant]
     Indication: Upper respiratory tract infection
     Route: 048
     Dates: start: 20210613, end: 20210614
  10. LEVOFLOXACIN [Concomitant]
     Active Substance: LEVOFLOXACIN
     Indication: Upper respiratory tract infection
     Route: 048
     Dates: start: 20210613, end: 20210614
  11. TRAMADOL HYDROCHLORIDE [Concomitant]
     Active Substance: TRAMADOL HYDROCHLORIDE
     Indication: Arthralgia
     Route: 048
     Dates: start: 20210614, end: 20210617
  12. ILAPRAZOLESODIUMFORINJECTION [Concomitant]
     Indication: Protein total
     Route: 042
     Dates: start: 20210616, end: 20210616
  13. OMEPRAZOLE SODIUM FOR INJECTION [Concomitant]
     Indication: Protein total
     Route: 042
     Dates: start: 20210616, end: 20210619
  14. SEDUM SARMENTOSUM PARTICLES [Concomitant]
     Indication: Liver injury
     Route: 048
     Dates: start: 20210616, end: 20210716

REACTIONS (1)
  - Drug-induced liver injury [Not Recovered/Not Resolved]

NARRATIVE: CASE EVENT DATE: 20210616
